FAERS Safety Report 12523279 (Version 1)
Quarter: 2016Q3

REPORT INFORMATION
  Report Type: Spontaneous
  Country: JP (occurrence: JP)
  Receive Date: 20160702
  Receipt Date: 20160702
  Transmission Date: 20161109
  Serious: Yes (Other)
  Sender: FDA-Public Use
  Company Number: JP-AMGEN-JPNSP2016086310

PATIENT
  Age: 84 Year
  Sex: Female

DRUGS (4)
  1. HALFDIGOXIN [Suspect]
     Active Substance: DIGOXIN
     Indication: ARRHYTHMIA
     Dosage: UNK
     Route: 048
  2. DENOTAS [Suspect]
     Active Substance: CALCIUM CARBONATE\CHOLECALCIFEROL\MAGNESIUM CARBONATE
     Indication: HYPOCALCAEMIA
     Dosage: UNK, QD
     Route: 048
     Dates: start: 20160418
  3. PRALIA [Suspect]
     Active Substance: DENOSUMAB
     Indication: OSTEOPOROSIS
     Dosage: 60 MG, Q6MO
     Route: 058
     Dates: start: 20160418
  4. HALFDIGOXIN [Suspect]
     Active Substance: DIGOXIN
     Indication: CARDIAC FAILURE

REACTIONS (4)
  - Cardiac failure [Unknown]
  - Hypercalcaemia [Recovered/Resolved]
  - Arrhythmia [Unknown]
  - Nausea [Unknown]

NARRATIVE: CASE EVENT DATE: 20160422
